FAERS Safety Report 18590429 (Version 5)
Quarter: 2021Q3

REPORT INFORMATION
  Report Type: Spontaneous
  Country: LT (occurrence: LT)
  Receive Date: 20201208
  Receipt Date: 20210817
  Transmission Date: 20211014
  Serious: Yes (Life-Threatening)
  Sender: FDA-Public Use
  Company Number: LT-AMERICAN REGENT INC-2020002566

PATIENT
  Sex: Male

DRUGS (8)
  1. VITAMIN D NOS [Suspect]
     Active Substance: VITAMIN D NOS
     Indication: VITAMIN D DEFICIENCY
     Dosage: UNK
     Route: 065
  2. IBUPROFEN. [Suspect]
     Active Substance: IBUPROFEN
     Indication: PATENT DUCTUS ARTERIOSUS
     Dosage: UNK
     Route: 065
  3. FOLIC ACID. [Suspect]
     Active Substance: FOLIC ACID
     Indication: ANAEMIA
     Dosage: UNK
     Route: 065
  4. VENOFER [Suspect]
     Active Substance: IRON SUCROSE
     Indication: ANAEMIA
     Dosage: UNK
  5. MALTOFER                           /00023548/ [Suspect]
     Active Substance: IRON POLYMALTOSE
     Indication: ANAEMIA
     Dosage: UNK
     Route: 048
  6. VITAMIN D NOS [Suspect]
     Active Substance: VITAMIN D NOS
     Indication: HYPERCALCIURIA
  7. VITAMIN D NOS [Suspect]
     Active Substance: VITAMIN D NOS
     Indication: NEPHROCALCINOSIS
     Dosage: UNK, DOSE INCREASED AT 5 MONTHS OF AGE
     Route: 065
  8. VITAMIN D NOS [Suspect]
     Active Substance: VITAMIN D NOS
     Indication: HYPERPARATHYROIDISM

REACTIONS (2)
  - Drug ineffective [Not Recovered/Not Resolved]
  - Off label use [Unknown]
